FAERS Safety Report 6375177-1 (Version None)
Quarter: 2009Q3

REPORT INFORMATION
  Report Type: 
  Country: None (occurrence: None)
  Receive Date: 20090924
  Receipt Date: 20090914
  Transmission Date: 20100115
  Serious: Yes (Life-Threatening)
  Sender: FDA-Public Use
  Company Number: JP-JNJFOC-20090900246

PATIENT
  Sex: Male
  Weight: 58 kg

DRUGS (8)
  1. REMICADE [Suspect]
     Dosage: 4TH INFUSION
     Route: 042
     Dates: end: 20090828
  2. REMICADE [Suspect]
     Indication: RHEUMATOID ARTHRITIS
     Dosage: 3 INFUSIONS ON UNSPECIFIED DATES
     Route: 042
     Dates: end: 20090828
  3. SELBEX [Concomitant]
     Indication: PROPHYLAXIS
     Route: 048
  4. ACINON [Concomitant]
     Indication: PROPHYLAXIS
     Route: 048
  5. METHOTREXATE [Concomitant]
     Indication: RHEUMATOID ARTHRITIS
     Route: 048
  6. FOLIAMIN [Concomitant]
     Indication: PROPHYLAXIS
     Route: 048
  7. LOXONIN [Concomitant]
     Indication: RHEUMATOID ARTHRITIS
     Route: 048
  8. MEDROL [Concomitant]
     Indication: RHEUMATOID ARTHRITIS
     Route: 048

REACTIONS (3)
  - INFUSION RELATED REACTION [None]
  - SHOCK [None]
  - SYNOVIAL CYST [None]
